FAERS Safety Report 10723922 (Version 1)
Quarter: 2015Q1

REPORT INFORMATION
  Report Type: Spontaneous
  Country: US (occurrence: None)
  Receive Date: 20150115
  Receipt Date: 20150115
  Transmission Date: 20150721
  Serious: Yes (Other)
  Sender: FDA-Public Use
  Company Number: 2015-US-000163

PATIENT
  Sex: Female

DRUGS (1)
  1. XYREM [Suspect]
     Active Substance: SODIUM OXYBATE
     Indication: NARCOLEPSY
     Dosage: 2.25 G, BID, ORAL
     Route: 048
     Dates: start: 201401, end: 2014

REACTIONS (6)
  - Lower respiratory tract infection [None]
  - Dehydration [None]
  - Dry mouth [None]
  - Dry eye [None]
  - Sjogren^s syndrome [None]
  - Ocular hyperaemia [None]
